FAERS Safety Report 11427378 (Version 1)
Quarter: 2015Q3

REPORT INFORMATION
  Report Type: Spontaneous
  Country: US (occurrence: US)
  Receive Date: 20150827
  Receipt Date: 20150827
  Transmission Date: 20151125
  Serious: No
  Sender: FDA-Public Use
  Company Number: US-SA-2015SA090083

PATIENT
  Sex: Female

DRUGS (2)
  1. FABRAZYME [Suspect]
     Active Substance: AGALSIDASE BETA
     Indication: LIPIDOSIS
     Dosage: DOSE: 70 MG AND 05 MG
     Route: 041
     Dates: start: 20150319, end: 201506
  2. FABRAZYME [Suspect]
     Active Substance: AGALSIDASE BETA
     Indication: FABRY^S DISEASE
     Dosage: DOSE: 70 MG AND 05 MG
     Route: 041
     Dates: start: 20150319, end: 201506

REACTIONS (3)
  - Asthma [Unknown]
  - Sinusitis [Unknown]
  - Pain in extremity [Unknown]
